FAERS Safety Report 6091910-0 (Version None)
Quarter: 2009Q1

REPORT INFORMATION
  Report Type: 
  Country: None (occurrence: None)
  Receive Date: 20090225
  Receipt Date: 20080925
  Transmission Date: 20090719
  Serious: No
  Sender: FDA-Public Use
  Company Number: A0749244A

PATIENT
  Age: 73 Year
  Sex: Male

DRUGS (10)
  1. VALTREX [Suspect]
     Dosage: 1G PER DAY
     Route: 048
     Dates: start: 20080401
  2. ABREVA [Concomitant]
  3. PILOCARPINE [Concomitant]
  4. HYDROXYUREA [Concomitant]
  5. ANAGRELIDE HCL [Concomitant]
  6. UNKNOWN MEDICATION [Concomitant]
  7. GLUCOSAMINE [Concomitant]
  8. TETRACYCLINE [Concomitant]
  9. AMLODIPINE [Concomitant]
  10. CRESTOR [Concomitant]

REACTIONS (1)
  - DRUG INEFFECTIVE [None]
